FAERS Safety Report 20634408 (Version 2)
Quarter: 2022Q2

REPORT INFORMATION
  Report Type: Spontaneous
  Country: JP (occurrence: None)
  Receive Date: 20220325
  Receipt Date: 20220408
  Transmission Date: 20220721
  Serious: Yes (Other)
  Sender: FDA-Public Use
  Company Number: 2022A119249

PATIENT
  Age: 80 Year
  Sex: Female

DRUGS (2)
  1. DAPAGLIFLOZIN [Suspect]
     Active Substance: DAPAGLIFLOZIN
     Indication: Type 1 diabetes mellitus
     Dosage: DOSE UNKNOWN
     Route: 048
     Dates: start: 202201
  2. INSULIN NOS [Concomitant]
     Active Substance: INSULIN NOS
     Indication: Type 1 diabetes mellitus
     Dosage: DOSE UNKNOWN
     Route: 065

REACTIONS (4)
  - Dehydration [Unknown]
  - Physical deconditioning [Unknown]
  - Movement disorder [Unknown]
  - Off label use [Unknown]

NARRATIVE: CASE EVENT DATE: 20220101
